FAERS Safety Report 17295906 (Version 5)
Quarter: 2020Q2

REPORT INFORMATION
  Report Type: Spontaneous
  Country: US (occurrence: US)
  Receive Date: 20200121
  Receipt Date: 20200514
  Transmission Date: 20200713
  Serious: Yes (Other)
  Sender: FDA-Public Use
  Company Number: US-PFIZER INC-2020027377

PATIENT
  Age: 74 Year
  Sex: Female

DRUGS (1)
  1. XELJANZ [Suspect]
     Active Substance: TOFACITINIB CITRATE
     Dosage: 5 MG

REACTIONS (7)
  - Alopecia [Unknown]
  - Fall [Unknown]
  - Gait inability [Unknown]
  - Head injury [Unknown]
  - Haemorrhage [Unknown]
  - Hand deformity [Not Recovered/Not Resolved]
  - Scab [Unknown]
